FAERS Safety Report 16445272 (Version 1)
Quarter: 2019Q2

REPORT INFORMATION
  Report Type: Spontaneous
  Country: US (occurrence: US)
  Receive Date: 20190618
  Receipt Date: 20190618
  Transmission Date: 20190711
  Serious: No
  Sender: FDA-Public Use
  Company Number: US-TEVA-2019-US-1061390

PATIENT
  Age: 62 Year
  Sex: Female

DRUGS (2)
  1. ACETAZOLAMIDE. [Suspect]
     Active Substance: ACETAZOLAMIDE
     Indication: NEW DAILY PERSISTENT HEADACHE
     Dosage: 750 MILLIGRAM DAILY;
     Route: 065
  2. INDOMETHACIN SR [Concomitant]
     Indication: NEW DAILY PERSISTENT HEADACHE
     Route: 065

REACTIONS (1)
  - Treatment failure [Unknown]
